FAERS Safety Report 19964262 (Version 1)
Quarter: 2021Q4

REPORT INFORMATION
  Report Type: Spontaneous
  Country: US (occurrence: US)
  Receive Date: 20211014
  Receipt Date: 20211014
  Transmission Date: 20220303
  Serious: Yes (Life-Threatening)
  Sender: FDA-Public Use
  Company Number: None

PATIENT
  Age: 91 Year
  Sex: Female
  Weight: 61.23 kg

DRUGS (3)
  1. TRAMADOL [Suspect]
     Active Substance: TRAMADOL
  2. LORAZEPAM [Suspect]
     Active Substance: LORAZEPAM
  3. LORAZEPAM [Suspect]
     Active Substance: LORAZEPAM

REACTIONS (8)
  - Tremor [None]
  - Dyskinesia [None]
  - Agitation [None]
  - Anxiety [None]
  - Therapy non-responder [None]
  - Sedation complication [None]
  - Somnolence [None]
  - Balance disorder [None]

NARRATIVE: CASE EVENT DATE: 20211002
